FAERS Safety Report 17547269 (Version 2)
Quarter: 2020Q2

REPORT INFORMATION
  Report Type: Report from Study
  Country: BR (occurrence: BR)
  Receive Date: 20200316
  Receipt Date: 20200603
  Transmission Date: 20200713
  Serious: Yes (Hospitalization, Other)
  Sender: FDA-Public Use
  Company Number: BR-TAKEDA-2020TUS014196

PATIENT
  Sex: Female

DRUGS (22)
  1. ELIQUIS [Concomitant]
     Active Substance: APIXABAN
     Dosage: 5 MILLIGRAM, Q12H
  2. ROSUCOR [Concomitant]
     Active Substance: ROSUVASTATIN CALCIUM
     Indication: ARRHYTHMIA
  3. DIOSMIN [Concomitant]
     Active Substance: DIOSMIN
     Indication: VARICOSE VEIN
     Dosage: UNK
  4. CHLORTALIDONE [Concomitant]
     Active Substance: CHLORTHALIDONE
     Indication: HYPERTENSION
  5. BUSCOPAN [Concomitant]
     Active Substance: BUTYLSCOPOLAMINE BROMIDE
     Indication: ABDOMINAL PAIN
     Dosage: UNK UNK, QD
  6. AMLODIPINE [Concomitant]
     Active Substance: AMLODIPINE BESYLATE
     Indication: HYPERTENSION
     Dosage: UNK
  7. METHYLDOPA. [Concomitant]
     Active Substance: METHYLDOPA
     Indication: ARRHYTHMIA
  8. CHLORTALIDONE [Concomitant]
     Active Substance: CHLORTHALIDONE
     Indication: DIURETIC THERAPY
     Dosage: 25 MILLIGRAM, QD
  9. ALDACTONE [Concomitant]
     Active Substance: SPIRONOLACTONE
     Indication: HYPERTENSION
     Dosage: 25 MILLIGRAM, QD
  10. LOSARTAN. [Concomitant]
     Active Substance: LOSARTAN
     Indication: HYPERTENSION
     Dosage: 50 MILLIGRAM, Q12H
  11. MEBEVERINE [Concomitant]
     Active Substance: MEBEVERINE
     Indication: CROHN^S DISEASE
     Dosage: 200 MILLIGRAM, Q12H
  12. METHYLDOPA. [Concomitant]
     Active Substance: METHYLDOPA
     Indication: HYPERTENSION
     Dosage: UNK UNK, BID
  13. ALDACTONE [Concomitant]
     Active Substance: SPIRONOLACTONE
     Indication: ARRHYTHMIA
  14. ROSUCOR [Concomitant]
     Active Substance: ROSUVASTATIN CALCIUM
     Indication: HYPERTENSION
     Dosage: UNK UNK, QD
  15. TROPINAL [Concomitant]
     Indication: ABDOMINAL PAIN
     Dosage: UNK
  16. AMLODIPINE [Concomitant]
     Active Substance: AMLODIPINE BESYLATE
     Indication: ARRHYTHMIA
  17. CHLORTALIDONE [Concomitant]
     Active Substance: CHLORTHALIDONE
     Indication: ARRHYTHMIA
  18. LOSARTAN. [Concomitant]
     Active Substance: LOSARTAN
     Indication: ARRHYTHMIA
  19. DIOSMIN [Concomitant]
     Active Substance: DIOSMIN
     Indication: BURNING SENSATION
  20. VEDOLIZUMAB [Suspect]
     Active Substance: VEDOLIZUMAB
     Indication: CROHN^S DISEASE
     Dosage: 300 MILLIGRAM
     Route: 042
     Dates: start: 20181017
  21. NESINA MET [Suspect]
     Active Substance: ALOGLIPTIN BENZOATE\METFORMIN HYDROCHLORIDE
     Indication: TYPE 2 DIABETES MELLITUS
     Dosage: 800 MILLIGRAM, BID
     Route: 048
  22. NITRENDIPINE [Concomitant]
     Active Substance: NITRENDIPINE
     Dosage: 20 MILLIGRAM, Q12H

REACTIONS (6)
  - Abdominal pain [Recovered/Resolved]
  - Coagulopathy [Recovered/Resolved]
  - Intestinal haemorrhage [Recovered/Resolved]
  - Diarrhoea [Recovered/Resolved]
  - Coronary artery insufficiency [Unknown]
  - Stress [Unknown]
